FAERS Safety Report 11058857 (Version 1)
Quarter: 2015Q2

REPORT INFORMATION
  Report Type: Spontaneous
  Country: US (occurrence: None)
  Receive Date: 20150422
  Receipt Date: 20150422
  Transmission Date: 20150821
  Serious: No
  Sender: FDA-Public Use
  Company Number: None

PATIENT
  Age: 53 Year
  Sex: Male
  Weight: 71 kg

DRUGS (1)
  1. CHOLESTYRAMINE. [Suspect]
     Active Substance: CHOLESTYRAMINE
     Indication: HYPERLIPIDAEMIA
     Dosage: 4/5, EVERY DAY, PO
     Route: 048
     Dates: start: 20091107, end: 20091202

REACTIONS (5)
  - Delirium [None]
  - Epistaxis [None]
  - Seizure [None]
  - Condition aggravated [None]
  - Rectal haemorrhage [None]

NARRATIVE: CASE EVENT DATE: 20091203
